FAERS Safety Report 13717597 (Version 2)
Quarter: 2017Q3

REPORT INFORMATION
  Report Type: Spontaneous
  Country: US (occurrence: US)
  Receive Date: 20170705
  Receipt Date: 20170811
  Transmission Date: 20171127
  Serious: No
  Sender: FDA-Public Use
  Company Number: US-GLAXOSMITHKLINE-US2017099233

PATIENT
  Age: 82 Year
  Sex: Male

DRUGS (1)
  1. VOLTAREN [Suspect]
     Active Substance: DICLOFENAC SODIUM
     Indication: PRECANCEROUS SKIN LESION
     Dosage: UNK
     Route: 061
     Dates: start: 20170621, end: 20170622

REACTIONS (8)
  - Drug administered at inappropriate site [Unknown]
  - Blood pressure increased [Recovered/Resolved]
  - Asthenia [Recovered/Resolved]
  - Nausea [Recovered/Resolved]
  - Fatigue [Recovered/Resolved]
  - Road traffic accident [Recovered/Resolved]
  - Coordination abnormal [Recovered/Resolved]
  - Off label use [Unknown]

NARRATIVE: CASE EVENT DATE: 20170622
